FAERS Safety Report 16639111 (Version 2)
Quarter: 2019Q3

REPORT INFORMATION
  Report Type: Spontaneous
  Country: PT (occurrence: PT)
  Receive Date: 20190726
  Receipt Date: 20190805
  Transmission Date: 20191004
  Serious: Yes (Other)
  Sender: FDA-Public Use
  Company Number: PT-MYLANLABS-2019M1069958

PATIENT
  Sex: Male

DRUGS (6)
  1. GEMCITABINE. [Suspect]
     Active Substance: GEMCITABINE
     Indication: METASTASIS
     Dosage: ADJUVANT CHEMOTHERAPY WITH CISPLATIN + GEMCITABINE X 4 CYCLES
     Route: 065
     Dates: start: 20170227, end: 20170619
  2. GEMCITABINE. [Suspect]
     Active Substance: GEMCITABINE
     Indication: METASTASES TO LYMPH NODES
  3. CISPLATINA TEVA [Suspect]
     Active Substance: CISPLATIN
     Indication: METASTASIS
     Dosage: ADJUVANT CHEMOTHERAPY WITH CISPLATIN + GEMCITABINE X 4 CYCLES.
     Route: 042
     Dates: start: 20170227, end: 20170619
  4. CAVERJECT [Concomitant]
     Active Substance: ALPROSTADIL
     Indication: METASTASIS
     Dosage: 0.01 MG / 1 ML AND THEN 0.02 MG / 1 ML
     Route: 017
     Dates: start: 201805
  5. CISPLATINA TEVA [Suspect]
     Active Substance: CISPLATIN
     Indication: METASTASES TO LYMPH NODES
  6. CAVERJECT [Concomitant]
     Active Substance: ALPROSTADIL
     Indication: ERECTILE DYSFUNCTION

REACTIONS (2)
  - Thrombocytopenia [Unknown]
  - Neurotoxicity [Unknown]
